FAERS Safety Report 20120644 (Version 3)
Quarter: 2022Q4

REPORT INFORMATION
  Report Type: Spontaneous
  Country: DE (occurrence: DE)
  Receive Date: 20211126
  Receipt Date: 20221114
  Transmission Date: 20230113
  Serious: Yes (Other)
  Sender: FDA-Public Use
  Company Number: DE-002147023-NVSC2021DE222834

PATIENT
  Age: 74 Year
  Sex: Male

DRUGS (1)
  1. TAMSULOSIN HYDROCHLORIDE [Suspect]
     Active Substance: TAMSULOSIN HYDROCHLORIDE
     Indication: Prostate infection
     Dosage: 0.4 MG, ONCE DAILY
     Route: 065

REACTIONS (8)
  - Blood pressure fluctuation [Not Recovered/Not Resolved]
  - Aortic valve incompetence [Unknown]
  - Swelling of eyelid [Unknown]
  - Large intestine polyp [Unknown]
  - Atrial fibrillation [Unknown]
  - Pulmonary hypertension [Unknown]
  - Diverticulum intestinal [Unknown]
  - Insomnia [Unknown]
